FAERS Safety Report 16040184 (Version 1)
Quarter: 2019Q1

REPORT INFORMATION
  Report Type: Spontaneous
  Country: US (occurrence: US)
  Receive Date: 20190306
  Receipt Date: 20190306
  Transmission Date: 20190418
  Serious: Yes (Hospitalization, Other)
  Sender: FDA-Public Use
  Company Number: US-ASTRAZENECA-2019SE35247

PATIENT

DRUGS (4)
  1. BRILINTA [Suspect]
     Active Substance: TICAGRELOR
     Indication: MYOCARDIAL INFARCTION
     Dosage: AS THE LOADING DOSE, TWO 90 MG TABLETS
     Route: 048
     Dates: start: 201902
  2. BRILINTA [Suspect]
     Active Substance: TICAGRELOR
     Indication: STENT PLACEMENT
     Dosage: AS THE LOADING DOSE, TWO 90 MG TABLETS
     Route: 048
     Dates: start: 201902
  3. ASPIRIN. [Concomitant]
     Active Substance: ASPIRIN
  4. INTEGRILIN [Concomitant]
     Active Substance: EPTIFIBATIDE

REACTIONS (1)
  - Thrombocytopenia [Recovered/Resolved]
